FAERS Safety Report 12438194 (Version 1)
Quarter: 2016Q2

REPORT INFORMATION
  Report Type: Other
  Country: GB (occurrence: GB)
  Receive Date: 20160606
  Receipt Date: 20160606
  Transmission Date: 20160815
  Serious: Yes (Other)
  Sender: FDA-Public Use
  Company Number: GB-MYLANLABS-2016M1023045

PATIENT

DRUGS (2)
  1. FEMODETTE [Concomitant]
     Dosage: UNK
  2. OLANZAPINE. [Suspect]
     Active Substance: OLANZAPINE
     Indication: PSYCHOTIC DISORDER
     Dosage: UNK (VARIED 2.5 - 10MG)
     Route: 048
     Dates: start: 20140914, end: 20150414

REACTIONS (4)
  - Increased appetite [Recovered/Resolved]
  - Dysarthria [Recovered/Resolved]
  - Abnormal weight gain [Recovered/Resolved]
  - Lethargy [Recovered/Resolved]

NARRATIVE: CASE EVENT DATE: 201409
